FAERS Safety Report 16124949 (Version 1)
Quarter: 2019Q1

REPORT INFORMATION
  Report Type: Spontaneous
  Country: FR (occurrence: FR)
  Receive Date: 20190327
  Receipt Date: 20190327
  Transmission Date: 20190418
  Serious: Yes (Life-Threatening, Hospitalization)
  Sender: FDA-Public Use
  Company Number: FR-PFM-2019-03219

PATIENT

DRUGS (5)
  1. EFFEXOR [Suspect]
     Active Substance: VENLAFAXINE HYDROCHLORIDE
     Indication: PRODUCT USED FOR UNKNOWN INDICATION
     Dosage: 60 DF, SINGLE
     Route: 048
     Dates: start: 20180522, end: 20180522
  2. TERCIAN [Suspect]
     Active Substance: CYAMEMAZINE
     Indication: PRODUCT USED FOR UNKNOWN INDICATION
     Dosage: 60 DF, SINGLE
     Route: 048
     Dates: start: 20180522, end: 20180522
  3. PROPRANOLOL [Suspect]
     Active Substance: PROPRANOLOL HYDROCHLORIDE
     Indication: PRODUCT USED FOR UNKNOWN INDICATION
     Dosage: 1500 MG, SINGLE
     Route: 048
     Dates: start: 20180522, end: 20180522
  4. TRANXENE [Suspect]
     Active Substance: CLORAZEPATE DIPOTASSIUM
     Indication: PRODUCT USED FOR UNKNOWN INDICATION
     Dosage: 60 DF, SINGLE
     Route: 048
     Dates: start: 20180522, end: 20180522
  5. TRANXENE [Suspect]
     Active Substance: CLORAZEPATE DIPOTASSIUM
     Indication: PRODUCT USED FOR UNKNOWN INDICATION
     Dosage: 150 DF, SINGLE
     Route: 048
     Dates: start: 20180522, end: 20180522

REACTIONS (6)
  - Coma [Recovering/Resolving]
  - Poisoning deliberate [Unknown]
  - Off label use [Unknown]
  - Product use issue [Unknown]
  - Hypotension [Recovered/Resolved]
  - Bradycardia [Recovering/Resolving]

NARRATIVE: CASE EVENT DATE: 20180523
